FAERS Safety Report 9165610 (Version 1)
Quarter: 2013Q1

REPORT INFORMATION
  Report Type: Spontaneous
  Country: US (occurrence: None)
  Receive Date: 20130227
  Receipt Date: 20130227
  Transmission Date: 20140127
  Serious: Yes (Hospitalization, Other)
  Sender: FDA-Public Use
  Company Number: 2013STPI000061

PATIENT
  Age: 82 Year
  Sex: Male

DRUGS (11)
  1. MATULANE [Suspect]
     Route: 048
     Dates: start: 20121211
  2. MATULANE [Suspect]
     Route: 048
     Dates: start: 20121211
  3. MATULANE [Suspect]
     Route: 048
     Dates: start: 20121211
  4. MATULANE [Suspect]
     Route: 048
     Dates: start: 20121211
  5. MATULANE [Suspect]
     Route: 048
     Dates: start: 20121211
  6. MATULANE [Suspect]
     Route: 048
     Dates: start: 20121211
  7. FLUCONAZOLE (FLUCONAZOLE) [Suspect]
  8. RITUXAN [Suspect]
  9. CYTOXAN [Suspect]
  10. ETOPOSIDE (ETOPOSIDE) [Suspect]
  11. PREDNISONE (PREDNISONE) [Suspect]

REACTIONS (11)
  - Pancreatitis [None]
  - Cardiac failure congestive [None]
  - Renal failure chronic [None]
  - Malnutrition [None]
  - Pleural effusion [None]
  - Generalised oedema [None]
  - Leukocytosis [None]
  - Anaemia [None]
  - Hypoalbuminaemia [None]
  - Pyrexia [None]
  - Nausea [None]
